FAERS Safety Report 10909207 (Version 1)
Quarter: 2015Q1

REPORT INFORMATION
  Report Type: Spontaneous
  Country: US (occurrence: US)
  Receive Date: 20150312
  Receipt Date: 20150312
  Transmission Date: 20150721
  Serious: Yes (Death)
  Sender: FDA-Public Use
  Company Number: US-BAYER-2015-036684

PATIENT
  Sex: Female

DRUGS (3)
  1. AVONEX [Suspect]
     Active Substance: INTERFERON BETA-1A
     Dosage: UNK UNK, OW
     Dates: start: 19980701, end: 20100301
  2. AVONEX [Suspect]
     Active Substance: INTERFERON BETA-1A
     Dosage: 30 ?G, UNK
     Route: 030
     Dates: start: 20100601
  3. BETASERON [Suspect]
     Active Substance: INTERFERON BETA-1B
     Indication: MULTIPLE SCLEROSIS

REACTIONS (1)
  - Death [Fatal]
